FAERS Safety Report 5016866-0 (Version None)
Quarter: 2006Q2

REPORT INFORMATION
  Report Type: 
  Country: None (occurrence: None)
  Receive Date: 20060526
  Receipt Date: 20060517
  Transmission Date: 20061013
  Serious: Yes (Hospitalization)
  Sender: FDA-Public Use
  Company Number: FR200604000368

PATIENT
  Age: 51 Year
  Sex: Male
  Weight: 71 kg

DRUGS (6)
  1. ZYPREXA [Suspect]
     Indication: AFFECTIVE DISORDER
     Dosage: 10 MG, DAILY (1/D); ORAL
     Route: 048
     Dates: start: 20050601, end: 20060203
  2. EFFEXOR [Concomitant]
  3. ATHYMIL (MIANSERIN HYDROCHLORIDE) [Concomitant]
  4. DEROXAT /SCH/ (PAROXETINE HYDROCHLORIDE) [Concomitant]
  5. SERESTA /NET/ (OXAZEPAM) [Concomitant]
  6. IMOVANE /UNK/ (ZOPICLONE) [Concomitant]

REACTIONS (2)
  - CARDIOMEGALY [None]
  - PULMONARY EMBOLISM [None]
